FAERS Safety Report 13319742 (Version 1)
Quarter: 2017Q1

REPORT INFORMATION
  Report Type: Spontaneous
  Country: US (occurrence: US)
  Receive Date: 20170309
  Receipt Date: 20170309
  Transmission Date: 20170428
  Serious: No
  Sender: FDA-Public Use
  Company Number: US-TEVA-657066USA

PATIENT
  Sex: Female
  Weight: 99.88 kg

DRUGS (1)
  1. BUSPIRONE [Suspect]
     Active Substance: BUSPIRONE HYDROCHLORIDE
     Indication: EAR PAIN

REACTIONS (4)
  - Fatigue [Unknown]
  - Feeling drunk [Unknown]
  - Malaise [Unknown]
  - Product use issue [Unknown]
